FAERS Safety Report 8455800-8 (Version None)
Quarter: 2012Q2

REPORT INFORMATION
  Report Type: 
  Country: None (occurrence: None)
  Receive Date: 20120613
  Receipt Date: 20120529
  Transmission Date: 20120825
  Serious: Yes (Other)
  Sender: FDA-Public Use
  Company Number: ENT 2012-0082

PATIENT
  Age: 84 Year
  Sex: Male

DRUGS (1)
  1. COMTAN [Suspect]
     Indication: PARKINSON'S DISEASE
     Dosage: 800 MG (200 MG, 4 IN 1 D), ORAL
     Route: 048
     Dates: start: 20120401, end: 20120513

REACTIONS (1)
  - PEMPHIGOID [None]
